FAERS Safety Report 11205609 (Version 1)
Quarter: 2015Q2

REPORT INFORMATION
  Report Type: Spontaneous
  Country: US (occurrence: None)
  Receive Date: 20150618
  Receipt Date: 20150618
  Transmission Date: 20150821
  Serious: Yes (Hospitalization)
  Sender: FDA-Public Use
  Company Number: None

PATIENT
  Age: 73 Year
  Sex: Female
  Weight: 91.3 kg

DRUGS (3)
  1. ALOXI [Suspect]
     Active Substance: PALONOSETRON HYDROCHLORIDE
     Indication: PROPHYLAXIS OF NAUSEA AND VOMITING
     Route: 042
     Dates: start: 20150513, end: 20150513
  2. NORMAL SALINE [Concomitant]
     Active Substance: SODIUM CHLORIDE
  3. EMEND [Suspect]
     Active Substance: APREPITANT
     Indication: PROPHYLAXIS OF NAUSEA AND VOMITING
     Dosage: 150 ONE TIME INTRAVENOUS
     Route: 042
     Dates: start: 20150513, end: 20150513

REACTIONS (5)
  - Heart rate increased [None]
  - Dyspnoea [None]
  - Hyperglycaemia [None]
  - Cyanosis [None]
  - Oxygen saturation decreased [None]

NARRATIVE: CASE EVENT DATE: 20150513
